FAERS Safety Report 21023055 (Version 2)
Quarter: 2022Q3

REPORT INFORMATION
  Report Type: Spontaneous
  Country: US (occurrence: US)
  Receive Date: 20220629
  Receipt Date: 20220809
  Transmission Date: 20221026
  Serious: No
  Sender: FDA-Public Use
  Company Number: US-PROPHARMA-226

PATIENT
  Age: 62 Year
  Sex: Male

DRUGS (1)
  1. AYVAKIT [Suspect]
     Active Substance: AVAPRITINIB
     Indication: Chronic lymphocytic leukaemia
     Route: 048
     Dates: start: 20220222

REACTIONS (4)
  - Diarrhoea [Unknown]
  - Periorbital swelling [Unknown]
  - Product dose omission in error [Unknown]
  - Off label use [Unknown]
